FAERS Safety Report 12957630 (Version 7)
Quarter: 2018Q3

REPORT INFORMATION
  Report Type: Spontaneous
  Country: US (occurrence: US)
  Receive Date: 20161119
  Receipt Date: 20180918
  Transmission Date: 20181010
  Serious: Yes (Life-Threatening, Hospitalization, Other)
  Sender: FDA-Public Use
  Company Number: US-ASTRAZENECA-2016SF21443

PATIENT
  Sex: Male
  Weight: 91.2 kg

DRUGS (9)
  1. SEROQUEL XR [Suspect]
     Active Substance: QUETIAPINE FUMARATE
     Indication: SUICIDAL IDEATION
     Route: 048
     Dates: start: 2016, end: 2016
  2. AMBIEN [Concomitant]
     Active Substance: ZOLPIDEM TARTRATE
     Indication: SLEEP DISORDER
     Route: 048
     Dates: start: 2016
  3. SEROQUEL XR [Suspect]
     Active Substance: QUETIAPINE FUMARATE
     Indication: TACHYPHRENIA
     Route: 048
     Dates: start: 2016, end: 2016
  4. SEROQUEL XR [Suspect]
     Active Substance: QUETIAPINE FUMARATE
     Indication: BIPOLAR DISORDER
     Route: 048
     Dates: start: 2016, end: 2016
  5. ZOLOFT [Concomitant]
     Active Substance: SERTRALINE HYDROCHLORIDE
  6. AMBIEN [Concomitant]
     Active Substance: ZOLPIDEM TARTRATE
     Indication: GENERAL SYMPTOM
     Route: 048
     Dates: start: 2016
  7. SEROQUEL XR [Suspect]
     Active Substance: QUETIAPINE FUMARATE
     Indication: MAJOR DEPRESSION
     Route: 048
     Dates: start: 2016, end: 2016
  8. FISH OIL [Concomitant]
     Active Substance: FISH OIL
     Indication: BLOOD CHOLESTEROL INCREASED
     Route: 048
     Dates: start: 201803
  9. VENLAFAXINE [Concomitant]
     Active Substance: VENLAFAXINE HYDROCHLORIDE

REACTIONS (32)
  - Suicide attempt [Recovering/Resolving]
  - Gastric dilatation [Unknown]
  - Self esteem decreased [Unknown]
  - Overdose [Recovered/Resolved]
  - Somnolence [Unknown]
  - Memory impairment [Not Recovered/Not Resolved]
  - Post-traumatic stress disorder [Unknown]
  - Suicidal ideation [Recovering/Resolving]
  - Cardiac disorder [Unknown]
  - Insomnia [Not Recovered/Not Resolved]
  - Depression [Not Recovered/Not Resolved]
  - Product use in unapproved indication [Recovered/Resolved]
  - Road traffic accident [Unknown]
  - Brain injury [Unknown]
  - Blood pressure increased [Unknown]
  - Thinking abnormal [Unknown]
  - Off label use [Recovered/Resolved]
  - Emotional disorder [Unknown]
  - Hepatic steatosis [Unknown]
  - Weight decreased [Unknown]
  - Abdominal distension [Not Recovered/Not Resolved]
  - Sexual dysfunction [Unknown]
  - Immunodeficiency [Unknown]
  - Skin ulcer [Unknown]
  - Hypertension [Unknown]
  - Headache [Unknown]
  - Somnambulism [Recovered/Resolved]
  - Glucose tolerance impaired [Unknown]
  - Amnesia [Unknown]
  - Weight increased [Recovering/Resolving]
  - Blood cholesterol increased [Not Recovered/Not Resolved]
  - Increased appetite [Recovered/Resolved]
